FAERS Safety Report 4856864-0 (Version None)
Quarter: 2005Q4

REPORT INFORMATION
  Report Type: 
  Country: None (occurrence: None)
  Receive Date: 20051219
  Receipt Date: 20050201
  Transmission Date: 20060501
  Serious: No
  Sender: FDA-Public Use
  Company Number: US-GLAXOSMITHKLINE-A0543210A

PATIENT
  Age: 55 Year
  Sex: Female

DRUGS (2)
  1. NICODERM CQ [Suspect]
  2. DIAVAN [Concomitant]

REACTIONS (3)
  - HYPERAESTHESIA [None]
  - OEDEMA PERIPHERAL [None]
  - PAIN IN EXTREMITY [None]
